FAERS Safety Report 7649975-8 (Version None)
Quarter: 2011Q3

REPORT INFORMATION
  Report Type: 
  Country: None (occurrence: None)
  Receive Date: 20110802
  Receipt Date: 20110725
  Transmission Date: 20111222
  Serious: Yes (Hospitalization)
  Sender: FDA-Public Use
  Company Number: CA-JNJFOC-20110711173

PATIENT
  Age: 78 Year
  Sex: Male
  Weight: 75 kg

DRUGS (7)
  1. XARELTO [Suspect]
     Indication: ILL-DEFINED DISORDER
     Route: 048
  2. PANTOPRAZOLE SODIUM [Concomitant]
     Indication: ILL-DEFINED DISORDER
  3. AVALIDE [Concomitant]
     Indication: ILL-DEFINED DISORDER
  4. METOPROLOL TARTRATE [Concomitant]
     Indication: ILL-DEFINED DISORDER
  5. ALFUZOSIN HCL [Concomitant]
     Indication: ILL-DEFINED DISORDER
  6. PRAVASTATIN [Concomitant]
     Indication: ILL-DEFINED DISORDER
  7. TYLENOL W/ CODEINE [Concomitant]
     Indication: ILL-DEFINED DISORDER

REACTIONS (1)
  - LIVER ABSCESS [None]
